FAERS Safety Report 9195896 (Version 1)
Quarter: 2013Q1

REPORT INFORMATION
  Report Type: Spontaneous
  Country: US (occurrence: None)
  Receive Date: 20120703
  Receipt Date: 20120703
  Transmission Date: 20140127
  Serious: No
  Sender: FDA-Public Use
  Company Number: PHEH2012US009019

PATIENT
  Age: 43 Year
  Sex: Female

DRUGS (23)
  1. GILENYA (FTY) CAPSULE, 0.5 MG [Suspect]
     Indication: MULTIPLE SCLEROSIS
     Route: 048
     Dates: start: 20120423, end: 20120423
  2. LYRICA (PREGABALIN) [Concomitant]
  3. PROTONIX [Concomitant]
  4. ATIVAN (LORAZEPAM) [Concomitant]
  5. AMITIZA (LUBIPROSTONE) [Concomitant]
  6. ZOLOFT (SERTRALINE HYDROCHLORIDE) [Concomitant]
  7. WELLBUTRIN XL [Concomitant]
  8. FLORINEF (FLUDROCORTISONE ACETATE) [Concomitant]
  9. DICYCLOMINE (DICYCLOVERINE) [Concomitant]
  10. DEPAKOTE (VALPROATE SEMISODIUM) [Concomitant]
  11. TRAMADOL (TRAMADOL) [Concomitant]
  12. ZOFRAN (ONDANSETRON HYDROCHLORIDE) [Concomitant]
  13. ZANTEC (RANITIDINE HYDROCHLORIDE) [Concomitant]
  14. REGLAN (METOCLOPRAMIDE HYDROCHLORIDE) [Concomitant]
  15. CLONAZEPAM [Concomitant]
  16. ATIVAN (LORAZEPAM) [Concomitant]
  17. VITAMIN D3 (COLECALCIFEROL) [Concomitant]
  18. PROBIOTICS (NO INGREDIENTS/SUBSTANCES) [Concomitant]
  19. OMEGA-3 (OMEGA-3 TRIGLYCERIDES) [Concomitant]
  20. VITAMIN C [Concomitant]
  21. VITAMIN B12 (CYANOCOBALAMIN) [Concomitant]
  22. MULTIVITAMIN (VITAMINS NOS) [Concomitant]
  23. ZINC (ZINC) [Concomitant]

REACTIONS (10)
  - Hyperhidrosis [None]
  - Faecal incontinence [None]
  - Somnolence [None]
  - Chills [None]
  - Malaise [None]
  - Vomiting [None]
  - Fatigue [None]
  - Nausea [None]
  - Weight decreased [None]
  - Diarrhoea [None]
